FAERS Safety Report 22819888 (Version 2)
Quarter: 2025Q3

REPORT INFORMATION
  Report Type: Spontaneous
  Country: US (occurrence: US)
  Receive Date: 20230814
  Receipt Date: 20250722
  Transmission Date: 20251021
  Serious: Yes (Hospitalization)
  Sender: SANOFI AVENTIS
  Company Number: US-SA-SAC20230811001000

PATIENT
  Sex: Male

DRUGS (22)
  1. DUPIXENT [Suspect]
     Active Substance: DUPILUMAB
     Indication: Asthma
     Dosage: 300 MG, QOW
     Route: 058
     Dates: start: 20191214
  2. CLONAZEPAM [Concomitant]
     Active Substance: CLONAZEPAM
  3. ACETAMINOPHEN [Concomitant]
     Active Substance: ACETAMINOPHEN
  4. DALIRESP [Concomitant]
     Active Substance: ROFLUMILAST
  5. APTIOM [Concomitant]
     Active Substance: ESLICARBAZEPINE ACETATE
  6. GABAPENTIN [Concomitant]
     Active Substance: GABAPENTIN
  7. ZOLOFT [Concomitant]
     Active Substance: SERTRALINE HYDROCHLORIDE
  8. SYMBICORT [Concomitant]
     Active Substance: BUDESONIDE\FORMOTEROL FUMARATE DIHYDRATE
  9. XYZAL [Concomitant]
     Active Substance: LEVOCETIRIZINE DIHYDROCHLORIDE
  10. AZITHROMYCIN [Concomitant]
     Active Substance: AZITHROMYCIN
  11. LACOSAMIDE [Concomitant]
     Active Substance: LACOSAMIDE
  12. MELATONIN [Concomitant]
     Active Substance: MELATONIN
  13. MUCINEX MAXIMUM STRENGTH [Concomitant]
     Active Substance: GUAIFENESIN
  14. PREDNISONE [Concomitant]
     Active Substance: PREDNISONE
  15. DIAZEPAM [Concomitant]
     Active Substance: DIAZEPAM
  16. CYCLOBENZAPRINE [Concomitant]
     Active Substance: CYCLOBENZAPRINE
  17. IPRATROPIUM [Concomitant]
     Active Substance: IPRATROPIUM
  18. SPIRIVA [Concomitant]
     Active Substance: TIOTROPIUM BROMIDE MONOHYDRATE
  19. MONTELUKAST [Concomitant]
     Active Substance: MONTELUKAST
  20. PRAVASTATIN [Concomitant]
     Active Substance: PRAVASTATIN
  21. PRAZOSIN HYDROCHLORIDE [Concomitant]
     Active Substance: PRAZOSIN HYDROCHLORIDE
  22. SPIRIVA [Concomitant]
     Active Substance: TIOTROPIUM BROMIDE MONOHYDRATE

REACTIONS (4)
  - Hospitalisation [Not Recovered/Not Resolved]
  - Ear disorder [Unknown]
  - Hypoacusis [Not Recovered/Not Resolved]
  - Migraine [Not Recovered/Not Resolved]
